FAERS Safety Report 7750674-2 (Version None)
Quarter: 2011Q3

REPORT INFORMATION
  Report Type: 
  Country: None (occurrence: None)
  Receive Date: 20110914
  Receipt Date: 20110909
  Transmission Date: 20111222
  Serious: Yes (Hospitalization)
  Sender: FDA-Public Use
  Company Number: US-GILEAD-2011-0043759

PATIENT
  Sex: Female

DRUGS (1)
  1. LETAIRIS [Suspect]
     Indication: PRODUCT USED FOR UNKNOWN INDICATION
     Route: 048
     Dates: start: 20090109, end: 20110820

REACTIONS (6)
  - RIGHT VENTRICULAR FAILURE [None]
  - DYSPNOEA [None]
  - EYE SWELLING [None]
  - DIZZINESS [None]
  - SWELLING [None]
  - ABDOMINAL DISTENSION [None]
